FAERS Safety Report 7618758-7 (Version None)
Quarter: 2011Q3

REPORT INFORMATION
  Report Type: 
  Country: None (occurrence: None)
  Receive Date: 20110718
  Receipt Date: 20110708
  Transmission Date: 20111222
  Serious: Yes (Other)
  Sender: FDA-Public Use
  Company Number: US-PERRIGO-11US005608

PATIENT
  Sex: Female
  Weight: 74.83 kg

DRUGS (13)
  1. VICODIN ES [Concomitant]
     Indication: RHEUMATOID ARTHRITIS
  2. POTASSIUM CITRATE [Concomitant]
     Indication: FANCONI SYNDROME
     Dosage: 2 PKTS, DAILY
     Route: 065
  3. VITAMIN D [Concomitant]
     Indication: FANCONI SYNDROME
     Dosage: 50000 IU EVERY 3 DAYS
     Route: 065
  4. IBUPROFEN [Suspect]
     Indication: HEADACHE
  5. OMEPRAZOLE [Concomitant]
     Indication: ASTHMA
  6. VALIUM [Concomitant]
     Indication: PAIN
     Dosage: 5MG, 1-3 TIMES DAILY
     Route: 065
  7. ALBUTEROL SULFATE AUTOHALER [Concomitant]
     Indication: ASTHMA
     Dosage: PRN
     Route: 055
  8. OMEPRAZOLE [Concomitant]
     Indication: GASTROOESOPHAGEAL REFLUX DISEASE
     Dosage: 40 MG, QD
     Route: 065
  9. VICODIN ES [Concomitant]
     Indication: FIBROMYALGIA
     Dosage: 750MG 1-4 TIMES. DAILY
     Route: 065
  10. IBUPROFEN [Suspect]
     Indication: DYSMENORRHOEA
     Dosage: 3 TABLETS, WITHIN 4 HOURS
     Route: 048
     Dates: start: 20060801, end: 20060801
  11. MAGNESIUM [Concomitant]
     Indication: FANCONI SYNDROME
     Dosage: 3 DAILY
     Route: 065
  12. FLEXERIL [Concomitant]
     Indication: RHEUMATOID ARTHRITIS
  13. FLEXERIL [Concomitant]
     Indication: FIBROMYALGIA
     Dosage: 10MG 1-3 TIMES DAILY
     Route: 065

REACTIONS (6)
  - HYPERSENSITIVITY [None]
  - CHOKING [None]
  - LACRIMATION INCREASED [None]
  - DYSPNOEA [None]
  - ANAPHYLACTIC SHOCK [None]
  - DRUG INEFFECTIVE [None]
